FAERS Safety Report 12445679 (Version 1)
Quarter: 2016Q2

REPORT INFORMATION
  Report Type: Spontaneous
  Country: US (occurrence: US)
  Receive Date: 20160608
  Receipt Date: 20160608
  Transmission Date: 20160815
  Serious: No
  Sender: FDA-Public Use
  Company Number: US-JNJFOC-20160505972

PATIENT
  Age: 76 Year
  Sex: Male
  Weight: 72.58 kg

DRUGS (7)
  1. TYLENOL 8 HR [Suspect]
     Active Substance: ACETAMINOPHEN
     Indication: MUSCULOSKELETAL PAIN
     Route: 048
     Dates: start: 20160504
  2. TYLENOL 8 HR [Suspect]
     Active Substance: ACETAMINOPHEN
     Indication: NECK PAIN
     Route: 048
     Dates: start: 20160504
  3. TYLENOL 8 HR [Suspect]
     Active Substance: ACETAMINOPHEN
     Indication: NECK PAIN
     Dosage: TWO CAPLETS ON 03-MAY-2016 AND TWO CAPLETS ON 04-MAY-2016
     Route: 048
     Dates: start: 20160503
  4. ALL OTHER THERAPEUTIC PRODUCTS [Concomitant]
     Active Substance: UNSPECIFIED INGREDIENT
     Indication: ANTICOAGULANT THERAPY
     Route: 065
  5. TYLENOL 8 HR [Suspect]
     Active Substance: ACETAMINOPHEN
     Indication: MUSCULOSKELETAL PAIN
     Dosage: TWO CAPLETS ON 03-MAY-2016 AND TWO CAPLETS ON 04-MAY-2016
     Route: 048
     Dates: start: 20160503
  6. LIPITOR [Concomitant]
     Active Substance: ATORVASTATIN CALCIUM
     Indication: BLOOD CHOLESTEROL INCREASED
     Route: 065
  7. FLOMAX [Concomitant]
     Active Substance: TAMSULOSIN HYDROCHLORIDE
     Indication: PRODUCT USED FOR UNKNOWN INDICATION
     Route: 065

REACTIONS (2)
  - Inappropriate schedule of drug administration [Unknown]
  - Drug effect decreased [Unknown]

NARRATIVE: CASE EVENT DATE: 20160503
